FAERS Safety Report 6073212-1 (Version None)
Quarter: 2009Q1

REPORT INFORMATION
  Report Type: 
  Country: None (occurrence: None)
  Receive Date: 20090206
  Receipt Date: 20090127
  Transmission Date: 20090719
  Serious: Yes (Hospitalization)
  Sender: FDA-Public Use
  Company Number: 2009-190405-NL

PATIENT
  Age: 62 Year
  Sex: Female

DRUGS (2)
  1. MIRTAZAPINE [Suspect]
     Dosage: 15 MG/30 MG
     Dates: start: 20090101, end: 20090101
  2. MIRTAZAPINE [Suspect]
     Dosage: 15 MG/30 MG
     Dates: start: 20090101

REACTIONS (2)
  - CONVULSION [None]
  - PETIT MAL EPILEPSY [None]
